FAERS Safety Report 24984107 (Version 1)
Quarter: 2025Q1

REPORT INFORMATION
  Report Type: Spontaneous
  Country: PT (occurrence: PT)
  Receive Date: 20250219
  Receipt Date: 20250219
  Transmission Date: 20250409
  Serious: Yes (Other)
  Sender: NOVARTIS
  Company Number: PT-SA-2025SA033767

PATIENT
  Age: 78 Year
  Sex: Male

DRUGS (11)
  1. HYDROCHLOROTHIAZIDE\VALSARTAN [Suspect]
     Active Substance: HYDROCHLOROTHIAZIDE\VALSARTAN
     Indication: Essential hypertension
     Dosage: 1 DF,QD (360/50MG)
     Route: 065
  2. HYDROCHLOROTHIAZIDE\VALSARTAN [Suspect]
     Active Substance: HYDROCHLOROTHIAZIDE\VALSARTAN
     Dosage: 1 DF, QD (160/25MG), (FOLLOWING RENAL DENERVATION DOSE WAS REDUCED)
     Route: 065
  3. FUROSEMIDE [Suspect]
     Active Substance: FUROSEMIDE
     Indication: Essential hypertension
     Dosage: 60 MG,QD
     Route: 065
  4. FUROSEMIDE [Suspect]
     Active Substance: FUROSEMIDE
     Dosage: 40 MG,QD (FOLLOWING RENAL DENERVATION) DOSE WAS REDUCED
     Route: 065
  5. AMLODIPINE [Suspect]
     Active Substance: AMLODIPINE BESYLATE
     Indication: Essential hypertension
     Dosage: 10 MG, QD
     Route: 065
  6. AMLODIPINE [Suspect]
     Active Substance: AMLODIPINE BESYLATE
     Dosage: 5 MG, QD  (FOLLOWING RENAL DENERVATION DOSE WAS REDUCED)
     Route: 065
  7. BISOPROLOL FUMARATE [Suspect]
     Active Substance: BISOPROLOL FUMARATE
     Indication: Essential hypertension
     Dosage: 10 MG, QD
     Route: 065
  8. METHYLDOPA [Suspect]
     Active Substance: METHYLDOPA
     Indication: Essential hypertension
     Dosage: 3 G, QD
     Route: 065
  9. METHYLDOPA [Suspect]
     Active Substance: METHYLDOPA
     Dosage: 750 MG, QD  (FOLLOWING RENAL DENERVATION DOSE WAS REDUCED)
     Route: 065
  10. SPIRONOLACTONE [Suspect]
     Active Substance: SPIRONOLACTONE
     Indication: Essential hypertension
     Dosage: 50 MG, QD
     Route: 065
  11. SPIRONOLACTONE [Suspect]
     Active Substance: SPIRONOLACTONE
     Dosage: 25 MG, QD, (FOLLOWING RENAL DENERVATION DOSE WAS REDUCED)
     Route: 065

REACTIONS (10)
  - Chronic kidney disease [Unknown]
  - Heart failure with preserved ejection fraction [Unknown]
  - Atrial fibrillation [Unknown]
  - Sigmoid-shaped ventricular septum [Unknown]
  - Cardiac hypertrophy [Unknown]
  - Hypertension [Recovering/Resolving]
  - Multiple-drug resistance [Recovering/Resolving]
  - Aortic dilatation [Unknown]
  - Left ventricular hypertrophy [Unknown]
  - Diastolic dysfunction [Unknown]
